FAERS Safety Report 20069205 (Version 1)
Quarter: 2021Q4

REPORT INFORMATION
  Report Type: Spontaneous
  Country: BE (occurrence: BE)
  Receive Date: 20211115
  Receipt Date: 20211115
  Transmission Date: 20220303
  Serious: Yes (Other)
  Sender: FDA-Public Use
  Company Number: BE-AMGEN-BELSP2020196601

PATIENT
  Age: 35 Year
  Sex: Female

DRUGS (11)
  1. CINACALCET HYDROCHLORIDE [Suspect]
     Active Substance: CINACALCET HYDROCHLORIDE
     Indication: Secondary hyperthyroidism
     Dosage: 60 MILLIGRAM, QD
     Route: 065
  2. ETELCALCETIDE [Suspect]
     Active Substance: ETELCALCETIDE
     Indication: Secondary hyperthyroidism
     Dosage: 5 MILLIGRAM, 3 TIMES/WK
     Route: 065
  3. ASPIRIN [Concomitant]
     Active Substance: ASPIRIN
     Dosage: UNK
  4. METHYLPREDNISOLONE [Concomitant]
     Active Substance: METHYLPREDNISOLONE
     Dosage: UNK
  5. ALFACALCIDOL [Concomitant]
     Active Substance: ALFACALCIDOL
     Dosage: UNK
     Dates: start: 201807, end: 202009
  6. COTRIMOXAZOLE [Concomitant]
     Active Substance: SULFAMETHOXAZOLE\TRIMETHOPRIM
     Dosage: UNK
  7. VALGANCICLOVIR [Concomitant]
     Active Substance: VALGANCICLOVIR
     Dosage: UNK
  8. AMLODIPINE [Concomitant]
     Active Substance: AMLODIPINE BESYLATE
     Dosage: UNK
  9. MYCOPHENOLATE MOFETIL [Concomitant]
     Active Substance: MYCOPHENOLATE MOFETIL
     Dosage: UNK
  10. TACROLIMUS [Concomitant]
     Active Substance: TACROLIMUS
     Dosage: UNK
  11. PANTOPRAZOLE [Concomitant]
     Active Substance: PANTOPRAZOLE
     Dosage: UNK

REACTIONS (8)
  - Delayed engraftment [Unknown]
  - Renal transplant [Unknown]
  - Adenoma benign [Unknown]
  - Vomiting [Unknown]
  - Hypercalcaemia [Recovering/Resolving]
  - Dyspepsia [Unknown]
  - Hyperparathyroidism [Recovering/Resolving]
  - Parathyroid hyperplasia [Unknown]
